FAERS Safety Report 19577439 (Version 1)
Quarter: 2021Q3

REPORT INFORMATION
  Report Type: Spontaneous
  Country: US (occurrence: US)
  Receive Date: 20210719
  Receipt Date: 20210719
  Transmission Date: 20211014
  Serious: No
  Sender: FDA-Public Use
  Company Number: US-CHIASMA-2021CHI00098

PATIENT
  Sex: Male

DRUGS (3)
  1. MYCAPSSA [Suspect]
     Active Substance: OCTREOTIDE
     Dosage: UNK
     Route: 048
  2. MYCAPSSA [Suspect]
     Active Substance: OCTREOTIDE
     Dosage: 40 MG, 1X/DAY (WITH 20 MG DOSE FOR 60 MG TOTAL DAILY)
     Route: 048
     Dates: start: 2021
  3. MYCAPSSA [Suspect]
     Active Substance: OCTREOTIDE
     Dosage: 20 MG, 1X/DAY (WITH 40 MG DOSE FOR 60 MG TOTAL DAILY)
     Route: 048
     Dates: start: 2021

REACTIONS (3)
  - Nausea [Unknown]
  - Abdominal pain upper [Unknown]
  - Gastrooesophageal reflux disease [Unknown]

NARRATIVE: CASE EVENT DATE: 2021
